FAERS Safety Report 11982375 (Version 10)
Quarter: 2019Q1

REPORT INFORMATION
  Report Type: Spontaneous
  Country: CA (occurrence: CA)
  Receive Date: 20160201
  Receipt Date: 20190330
  Transmission Date: 20190417
  Serious: Yes (Other)
  Sender: FDA-Public Use
  Company Number: CA-ROCHE-1701812

PATIENT
  Age: 74 Year
  Sex: Female

DRUGS (9)
  1. XOLAIR [Suspect]
     Active Substance: OMALIZUMAB
     Route: 058
     Dates: start: 20190123
  2. SEEBRI BREEZHALER [Concomitant]
     Active Substance: GLYCOPYRROLATE
     Dosage: 1 DF (50 UG), QD
     Route: 055
     Dates: start: 201502
  3. VENTOLIN [Concomitant]
     Active Substance: ALBUTEROL SULFATE
     Indication: ASTHMA
     Dosage: 2 DF, PRN
     Route: 055
     Dates: start: 201502
  4. XOLAIR [Suspect]
     Active Substance: OMALIZUMAB
     Indication: ASTHMA
     Route: 058
     Dates: start: 20150519
  5. SEEBRI BREEZHALER [Concomitant]
     Active Substance: GLYCOPYRROLATE
     Indication: ASTHMA
     Dosage: QD
     Route: 055
     Dates: start: 2014
  6. XOLAIR [Suspect]
     Active Substance: OMALIZUMAB
     Route: 058
     Dates: start: 20170905
  7. SYMBICORT [Concomitant]
     Active Substance: BUDESONIDE\FORMOTEROL FUMARATE DIHYDRATE
     Indication: ASTHMA
     Dosage: 2 DF, BID
     Route: 055
     Dates: start: 201408
  8. XOLAIR [Suspect]
     Active Substance: OMALIZUMAB
     Dosage: UNK
     Route: 058
     Dates: start: 20170517
  9. ALVESCO [Concomitant]
     Active Substance: CICLESONIDE
     Indication: ASTHMA
     Dosage: 2 DF, BID
     Route: 055
     Dates: start: 201408

REACTIONS (15)
  - Angina pectoris [Unknown]
  - Injection site bruising [Unknown]
  - Arthritis [Unknown]
  - Sputum retention [Unknown]
  - Blood pressure systolic decreased [Unknown]
  - Vision blurred [Unknown]
  - Cough [Unknown]
  - Lower respiratory tract congestion [Unknown]
  - Sensitivity to weather change [Unknown]
  - Wheezing [Unknown]
  - Headache [Not Recovered/Not Resolved]
  - Infection [Recovered/Resolved]
  - Discomfort [Unknown]
  - Dyspnoea exertional [Recovering/Resolving]
  - Chest discomfort [Unknown]

NARRATIVE: CASE EVENT DATE: 20150519
